FAERS Safety Report 21037721 (Version 1)
Quarter: 2022Q3

REPORT INFORMATION
  Report Type: Spontaneous
  Country: JP (occurrence: JP)
  Receive Date: 20220704
  Receipt Date: 20220704
  Transmission Date: 20221027
  Serious: Yes (Other)
  Sender: FDA-Public Use
  Company Number: JP-SUN PHARMACEUTICAL INDUSTRIES LTD-2022RR-342135

PATIENT
  Age: 56 Year
  Sex: Female

DRUGS (5)
  1. LORAZEPAM [Suspect]
     Active Substance: LORAZEPAM
     Indication: Malignant catatonia
     Dosage: 3 MILLIGRAM, DAILY
     Route: 065
  2. LORAZEPAM [Suspect]
     Active Substance: LORAZEPAM
     Indication: Neuroleptic malignant syndrome
  3. ARIPIPRAZOLE [Suspect]
     Active Substance: ARIPIPRAZOLE
     Indication: Schizophrenia
     Dosage: 12 MILLIGRAM, DAILY
     Route: 065
  4. PEROSPIRONE [Suspect]
     Active Substance: PEROSPIRONE
     Indication: Schizophrenia
     Dosage: 8 MILLIGRAM, DAILY
     Route: 065
  5. DANTROLENE [Suspect]
     Active Substance: DANTROLENE
     Indication: Myotonia
     Dosage: 40-80 MG/DAY
     Route: 065

REACTIONS (3)
  - Therapeutic product effect incomplete [Unknown]
  - Malignant catatonia [Recovering/Resolving]
  - Neuroleptic malignant syndrome [Recovering/Resolving]
